FAERS Safety Report 8945420 (Version 1)
Quarter: 2012Q4

REPORT INFORMATION
  Report Type: 
  Country: IL (occurrence: IL)
  Receive Date: 20121205
  Receipt Date: 20121205
  Transmission Date: 20130627
  Serious: Yes (Other)
  Sender: FDA-Public Use
  Company Number: PHHY2012IL109110

PATIENT
  Age: 14 Year
  Sex: Female

DRUGS (1)
  1. TOBI PODHALER [Suspect]
     Dosage: 112 mg, BID
     Dates: start: 20121105, end: 20121122

REACTIONS (1)
  - Haemoptysis [Unknown]
